FAERS Safety Report 4637573-X (Version None)
Quarter: 2005Q2

REPORT INFORMATION
  Report Type: 
  Country: None (occurrence: None)
  Receive Date: 20050418
  Receipt Date: 20050412
  Transmission Date: 20051028
  Serious: Yes (Death)
  Sender: FDA-Public Use
  Company Number: MX-BOEHRINGER INGELHEIM PHARMACEUTICALS, INC.-2005-BP-06019MX

PATIENT
  Age: 63 Year
  Sex: Female

DRUGS (1)
  1. MICARDIS PLUS TABLETS [Suspect]
     Indication: HYPERTENSION
     Dosage: 80/12.5 MG/MG
     Route: 048

REACTIONS (1)
  - MYOCARDIAL INFARCTION [None]
